FAERS Safety Report 10377675 (Version 1)
Quarter: 2014Q1

REPORT INFORMATION
  Report Type: Spontaneous
  Country: US (occurrence: None)
  Receive Date: 20140306
  Receipt Date: 20140306
  Transmission Date: 20141002
  Serious: Yes (Other)
  Sender: FDA-Public Use
  Company Number: 163-21880-13031287

PATIENT
  Age: 63 Year
  Sex: Male
  Weight: 88 kg

DRUGS (7)
  1. REVLIMID [Suspect]
     Indication: PLASMA CELL MYELOMA
     Dosage: 25 MG, 21 IN 28 D, PO
     Route: 048
     Dates: start: 20091109, end: 2010
  2. ASPIRIN (TABLETS) [Concomitant]
  3. CIALIS (TABLETS) [Concomitant]
  4. DEXAMETHASONE (DEXAMETHASONE) (TABLETS) [Concomitant]
  5. CHEW (UNKNOWN) [Concomitant]
  6. VITAMIN D (ERGOCALCIFEROL) (CAPSULES) [Concomitant]
  7. ZOMETA (ZOLEDRONIC ACID) (INJECTION) [Concomitant]

REACTIONS (1)
  - Pancytopenia [None]
